FAERS Safety Report 18632116 (Version 1)
Quarter: 2020Q4

REPORT INFORMATION
  Report Type: Report from Study
  Country: None (occurrence: DE)
  Receive Date: 20201217
  Receipt Date: 20201217
  Transmission Date: 20210114
  Serious: Yes (Other)
  Sender: FDA-Public Use
  Company Number: DE-ABBVIE-20K-062-3693677-00

PATIENT
  Sex: Male

DRUGS (1)
  1. HUMIRA [Suspect]
     Active Substance: ADALIMUMAB
     Indication: PSORIATIC ARTHROPATHY
     Dosage: AS REQUIRED, UP TO 3 MONTHS
     Route: 058
     Dates: start: 201112, end: 2016

REACTIONS (5)
  - Psoriatic arthropathy [Unknown]
  - Cardiac valve disease [Recovered/Resolved]
  - Musculoskeletal stiffness [Unknown]
  - Pain in extremity [Unknown]
  - Psoriasis [Unknown]

NARRATIVE: CASE EVENT DATE: 2016
